FAERS Safety Report 5731306-1 (Version None)
Quarter: 2008Q2

REPORT INFORMATION
  Report Type: 
  Country: None (occurrence: None)
  Receive Date: 20080505
  Receipt Date: 20080428
  Transmission Date: 20081010
  Serious: Yes (Death)
  Sender: FDA-Public Use
  Company Number: CHPA2008US07415

PATIENT
  Age: 82 Year
  Sex: Male

DRUGS (2)
  1. BENEFIBER (NCH)(GUAR GUM) POWDER [Suspect]
     Indication: CONSTIPATION
     Dosage: ORAL
     Route: 048
  2. BENEFIBER CHEWABLE TABLET (NCH)(GUAR GUM) CHEWABLE TABLET [Suspect]
     Indication: CONSTIPATION
     Dosage: ORAL

REACTIONS (1)
  - COLON CANCER [None]
